FAERS Safety Report 24124855 (Version 3)
Quarter: 2025Q3

REPORT INFORMATION
  Report Type: Spontaneous
  Country: EU (occurrence: EU)
  Receive Date: 20240723
  Receipt Date: 20250904
  Transmission Date: 20251020
  Serious: Yes (Other)
  Sender: TEVA
  Company Number: EU-ABBVIE-5529157

PATIENT
  Age: 71 Year
  Sex: Male

DRUGS (3)
  1. ACITRETIN [Suspect]
     Active Substance: ACITRETIN
     Indication: Psoriasis
     Route: 065
     Dates: start: 201902
  2. ADALIMUMAB [Suspect]
     Active Substance: ADALIMUMAB
     Indication: Psoriasis
     Route: 058
     Dates: start: 201201
  3. CYCLOSPORINE [Suspect]
     Active Substance: CYCLOSPORINE
     Indication: Psoriasis
     Route: 065

REACTIONS (4)
  - Xerophthalmia [Unknown]
  - Drug ineffective [Unknown]
  - Dry mouth [Unknown]
  - Nausea [Unknown]

NARRATIVE: CASE EVENT DATE: 20190101
